FAERS Safety Report 14499368 (Version 1)
Quarter: 2018Q1

REPORT INFORMATION
  Report Type: Spontaneous
  Country: US (occurrence: US)
  Receive Date: 20180206
  Receipt Date: 20180206
  Transmission Date: 20180509
  Serious: No
  Sender: FDA-Public Use
  Company Number: None

PATIENT
  Age: 68 Year
  Sex: Female
  Weight: 91.35 kg

DRUGS (19)
  1. CVS IRON [Concomitant]
  2. GENERIC BENADRYL [Concomitant]
     Active Substance: DIPHENHYDRAMINE HYDROCHLORIDE
  3. IRBESARTIN [Concomitant]
  4. RANITIDINE. [Concomitant]
     Active Substance: RANITIDINE
  5. LOPERMIDE [Concomitant]
  6. DX RELIEF GAS RELIEF (SIMETHICONE) [Concomitant]
  7. NATURE^S WAY ORIGINAL SAMBUCUS STANDARDIZED ELBERBERRY [Concomitant]
  8. THERA-TEARS DEY EYE [Concomitant]
  9. ETHACRYNIC ACID. [Concomitant]
     Active Substance: ETHACRYNIC ACID
  10. MIRALAX [Suspect]
     Active Substance: POLYETHYLENE GLYCOL 3350
     Indication: CONSTIPATION
     Route: 048
     Dates: start: 20180131, end: 20180131
  11. GENERIC AMBIEN [Concomitant]
  12. WOMEN^S ALIVE GUMMY VITAMINS [Concomitant]
  13. AVEENO [Concomitant]
     Active Substance: DIMETHICONE\HOMOSALATE\OCTINOXATE\OCTISALATE\TITANIUM DIOXIDE
  14. ARTHRITIS PAIN RELIEF [Concomitant]
     Active Substance: ACETAMINOPHEN
  15. CITRUCEL [Concomitant]
     Active Substance: METHYLCELLULOSE (4000 MPA.S)
  16. GENERIC COLACE [Concomitant]
  17. NYSTATIN. [Concomitant]
     Active Substance: NYSTATIN
  18. PROFOOT EPSOM SALT [Concomitant]
  19. EQUATE STOOL SOFTENERS [Concomitant]

REACTIONS (9)
  - Dizziness [None]
  - Chest pain [None]
  - Joint swelling [None]
  - Peripheral swelling [None]
  - Dyspnoea [None]
  - Haemorrhage [None]
  - Blood pressure increased [None]
  - Heart rate increased [None]
  - Pain in extremity [None]

NARRATIVE: CASE EVENT DATE: 20180131
